FAERS Safety Report 6687597-6 (Version None)
Quarter: 2010Q2

REPORT INFORMATION
  Report Type: 
  Country: None (occurrence: None)
  Receive Date: 20100416
  Receipt Date: 20100416
  Transmission Date: 20101027
  Serious: Yes (Disabling)
  Sender: FDA-Public Use
  Company Number: None

PATIENT
  Sex: Female
  Weight: 81.1939 kg

DRUGS (2)
  1. ENBREL [Suspect]
     Indication: PSORIATIC ARTHROPATHY
     Dosage: 50 MG WEEKLY SQ
     Route: 058
     Dates: start: 20060327, end: 20090812
  2. VITAMIN D [Concomitant]

REACTIONS (2)
  - IMMUNOSUPPRESSION [None]
  - STRONGYLOIDIASIS [None]
